FAERS Safety Report 14043691 (Version 2)
Quarter: 2017Q4

REPORT INFORMATION
  Report Type: Spontaneous
  Country: US (occurrence: US)
  Receive Date: 20171004
  Receipt Date: 20171017
  Transmission Date: 20180321
  Serious: Yes (Life-Threatening, Other)
  Sender: FDA-Public Use
  Company Number: US-ALLERGAN-1756317US

PATIENT
  Age: 29 Year
  Sex: Male

DRUGS (1)
  1. URSODEOXYCHOLIC ACID UNK [Suspect]
     Active Substance: URSODIOL
     Indication: CHOLESTASIS
     Dosage: 1 DF, UNK
     Route: 065

REACTIONS (3)
  - Angioedema [Recovered/Resolved]
  - Erythema [Recovering/Resolving]
  - Atrial fibrillation [Recovered/Resolved]
